FAERS Safety Report 8848356 (Version 1)
Quarter: 2012Q4

REPORT INFORMATION
  Report Type: 
  Country: US (occurrence: US)
  Receive Date: 20121018
  Receipt Date: 20121018
  Transmission Date: 20130627
  Serious: Yes (Hospitalization, Other)
  Sender: FDA-Public Use
  Company Number: US-ASTRAZENECA-2012SE77539

PATIENT
  Age: 54 Year
  Sex: Female
  Weight: 66.2 kg

DRUGS (6)
  1. NEXIUM [Suspect]
     Indication: GASTROOESOPHAGEAL REFLUX DISEASE
     Route: 048
     Dates: start: 2001
  2. NEXIUM [Suspect]
     Indication: GASTROOESOPHAGEAL REFLUX DISEASE
     Route: 048
     Dates: start: 201101
  3. MORPHINE [Suspect]
     Route: 065
  4. PHENERGRIN [Concomitant]
  5. HYDROCODONE [Concomitant]
     Dosage: AS REQUIRED
  6. KEPPRA [Concomitant]

REACTIONS (16)
  - Concussion [Unknown]
  - Osteoporosis [Unknown]
  - Intestinal obstruction [Unknown]
  - Multiple fractures [Unknown]
  - Grand mal convulsion [Unknown]
  - Gastrooesophageal reflux disease [Unknown]
  - Hiatus hernia [Unknown]
  - Hepatic lesion [Unknown]
  - Tooth disorder [Unknown]
  - Hypothyroidism [Unknown]
  - Abdominal pain upper [Unknown]
  - Blood magnesium decreased [Unknown]
  - Drug hypersensitivity [Unknown]
  - Vomiting [Unknown]
  - Drug ineffective [Unknown]
  - Intentional drug misuse [Unknown]
